FAERS Safety Report 20451562 (Version 1)
Quarter: 2022Q1

REPORT INFORMATION
  Report Type: Spontaneous
  Country: US (occurrence: US)
  Receive Date: 20220209
  Receipt Date: 20220209
  Transmission Date: 20220423
  Serious: No
  Sender: FDA-Public Use
  Company Number: US-NOVARTISTESTPH-NVSC2021US103998

PATIENT

DRUGS (1)
  1. PATADAY [Suspect]
     Active Substance: OLOPATADINE HYDROCHLORIDE
     Indication: Eye pruritus
     Dosage: 2.5 ML
     Route: 047

REACTIONS (5)
  - Eye swelling [Unknown]
  - Eye irritation [Recovering/Resolving]
  - Drug hypersensitivity [Unknown]
  - Ocular hyperaemia [Recovering/Resolving]
  - Drug ineffective [Unknown]
